FAERS Safety Report 12687922 (Version 4)
Quarter: 2016Q3

REPORT INFORMATION
  Report Type: Spontaneous
  Country: AR (occurrence: AR)
  Receive Date: 20160826
  Receipt Date: 20160927
  Transmission Date: 20161109
  Serious: Yes (Congenital Anomaly, Other)
  Sender: FDA-Public Use
  Company Number: AR-AMGEN-ARGSP2015126506

PATIENT
  Sex: Female

DRUGS (2)
  1. MTX [Concomitant]
     Active Substance: METHOTREXATE SODIUM
     Dosage: 15 MG, UNK
  2. ENBREL [Suspect]
     Active Substance: ETANERCEPT
     Indication: RHEUMATOID ARTHRITIS
     Dosage: 25 MG, 2X/WEEK
     Route: 064
     Dates: start: 2007, end: 20160301

REACTIONS (5)
  - Pyelocaliectasis [Unknown]
  - Maternal exposure during pregnancy [Unknown]
  - Underweight [Unknown]
  - Trisomy 21 [Unknown]
  - Cataract [Unknown]
